FAERS Safety Report 17023618 (Version 2)
Quarter: 2020Q1

REPORT INFORMATION
  Report Type: Report from Study
  Country: US (occurrence: US)
  Receive Date: 20191113
  Receipt Date: 20200130
  Transmission Date: 20200409
  Serious: Yes (Hospitalization)
  Sender: FDA-Public Use
  Company Number: US-ROCHE-2460191

PATIENT
  Age: 39 Year
  Sex: Female

DRUGS (2)
  1. OCREVUS [Suspect]
     Active Substance: OCRELIZUMAB
     Indication: MULTIPLE SCLEROSIS
     Dosage: 15/APR/2019?300 MG
     Route: 065
     Dates: start: 20190401
  2. OCREVUS [Suspect]
     Active Substance: OCRELIZUMAB
     Dosage: 15/APR/2019
     Route: 065
     Dates: start: 2019

REACTIONS (3)
  - Urinary tract infection [Recovered/Resolved]
  - Hallucination [Recovered/Resolved]
  - Psychotic disorder [Recovered/Resolved]

NARRATIVE: CASE EVENT DATE: 201910
